FAERS Safety Report 8557783-9 (Version None)
Quarter: 2012Q3

REPORT INFORMATION
  Report Type: 
  Country: None (occurrence: None)
  Receive Date: 20120801
  Receipt Date: 20120723
  Transmission Date: 20120928
  Serious: Yes (Other)
  Sender: FDA-Public Use
  Company Number: US-ASTRAZENECA-2011SE31564

PATIENT
  Age: 50 Year
  Sex: Female

DRUGS (3)
  1. NEXIUM [Suspect]
     Route: 048
  2. SYMBICORT [Suspect]
     Route: 055
  3. RHINOCORT [Suspect]
     Route: 045

REACTIONS (5)
  - HAND FRACTURE [None]
  - FIBROMYALGIA [None]
  - AMNESIA [None]
  - ROAD TRAFFIC ACCIDENT [None]
  - VERTIGO [None]
